FAERS Safety Report 6109200-6 (Version None)
Quarter: 2009Q1

REPORT INFORMATION
  Report Type: 
  Country: None (occurrence: None)
  Receive Date: 20090310
  Receipt Date: 20090225
  Transmission Date: 20090719
  Serious: Yes (Other)
  Sender: FDA-Public Use
  Company Number: PHHY2009BR07218

PATIENT
  Age: 48 Year
  Sex: Female
  Weight: 46 kg

DRUGS (2)
  1. METHERGINE [Suspect]
     Indication: MENSTRUAL DISORDER
     Dosage: 2 TAB,1 IN THE MORNING AND 1 AT NIGHT
     Dates: start: 20090222
  2. SUPRELLE [Concomitant]
     Indication: HORMONE REPLACEMENT THERAPY
     Dosage: 1 TAB DAILY AT NIGHT

REACTIONS (6)
  - ABDOMINAL PAIN [None]
  - DRUG INEFFECTIVE [None]
  - HEADACHE [None]
  - MENSTRUATION IRREGULAR [None]
  - PAIN [None]
  - PAIN IN EXTREMITY [None]
